FAERS Safety Report 5318190-5 (Version None)
Quarter: 2007Q2

REPORT INFORMATION
  Report Type: 
  Country: None (occurrence: None)
  Receive Date: 20070507
  Receipt Date: 20070426
  Transmission Date: 20071010
  Serious: Yes (Hospitalization, Other)
  Sender: FDA-Public Use
  Company Number: US-PFIZER INC-2006022269

PATIENT
  Sex: Male

DRUGS (20)
  1. GABAPENTIN [Suspect]
     Indication: DIABETIC NEUROPATHY
     Route: 048
  2. GABAPENTIN [Suspect]
     Indication: RESTLESS LEGS SYNDROME
  3. GABAPENTIN [Suspect]
     Indication: PAIN
  4. FIORINAL [Suspect]
  5. BENZODIAZEPINE DERIVATIVES [Suspect]
  6. RISPERIDONE [Concomitant]
  7. PAROXETINE [Concomitant]
  8. TRAZODONE HCL [Concomitant]
  9. INSULIN [Concomitant]
  10. LORTAB [Concomitant]
     Indication: NEURALGIA
  11. VASOTEC [Concomitant]
  12. HYDROCHLOROTHIAZIDE [Concomitant]
  13. METHYLCELLULOSE [Concomitant]
     Route: 061
  14. METOCLOPRAMIDE HYDROCHLORIDE [Concomitant]
     Route: 048
  15. NICOTINE [Concomitant]
     Route: 062
  16. OXYCODONE HYDROCHLORIDE W/PARACETAMOL [Concomitant]
     Route: 048
  17. PANCRELIPASE [Concomitant]
     Route: 048
  18. RABEPRAZOLE SODIUM [Concomitant]
     Route: 048
  19. SIMVASTATIN [Concomitant]
     Route: 048
  20. GLUCOSE [Concomitant]
     Route: 048

REACTIONS (5)
  - DRUG INEFFECTIVE [None]
  - HOMICIDAL IDEATION [None]
  - MAJOR DEPRESSION [None]
  - OVERDOSE [None]
  - SUICIDE ATTEMPT [None]
